FAERS Safety Report 8063111-8 (Version None)
Quarter: 2012Q1

REPORT INFORMATION
  Report Type: 
  Country: None (occurrence: None)
  Receive Date: 20120123
  Receipt Date: 20120113
  Transmission Date: 20120608
  Serious: Yes (Hospitalization, Other)
  Sender: FDA-Public Use
  Company Number: US-BAYER-2012-000042

PATIENT
  Age: 20 Year
  Sex: Female
  Weight: 81.633 kg

DRUGS (4)
  1. YAZ [Suspect]
     Dosage: UNK
     Dates: start: 20060701, end: 20091101
  2. IBUPROFEN [Concomitant]
  3. YASMIN [Suspect]
     Dosage: UNK
     Dates: start: 20060701, end: 20091101
  4. PERCOCET [Concomitant]

REACTIONS (17)
  - DYSPEPSIA [None]
  - MENTAL DISORDER [None]
  - PLEURAL EFFUSION [None]
  - CHOLECYSTITIS ACUTE [None]
  - DEPRESSION [None]
  - BILIARY DYSKINESIA [None]
  - ABDOMINAL PAIN UPPER [None]
  - NAUSEA [None]
  - DIARRHOEA [None]
  - FAMILY STRESS [None]
  - GALLBLADDER DISORDER [None]
  - ANXIETY [None]
  - PANIC DISORDER [None]
  - OVARIAN CYST RUPTURED [None]
  - INTRA-ABDOMINAL HAEMORRHAGE [None]
  - BILE DUCT STONE [None]
  - ILEUS [None]
